FAERS Safety Report 24919941 (Version 1)
Quarter: 2025Q1

REPORT INFORMATION
  Report Type: Report from Study
  Country: US (occurrence: US)
  Receive Date: 20250204
  Receipt Date: 20250204
  Transmission Date: 20250409
  Serious: No
  Sender: EXELIXIS
  Company Number: US-EXELIXIS-CABO-24074809

PATIENT
  Sex: Male
  Weight: 84.989 kg

DRUGS (2)
  1. CABOMETYX [Suspect]
     Active Substance: CABOZANTINIB S-MALATE
     Indication: Renal cancer
     Dosage: 40 MG, QD
     Route: 048
  2. CABOMETYX [Suspect]
     Active Substance: CABOZANTINIB S-MALATE
     Dosage: 40 MG, QD
     Route: 048

REACTIONS (9)
  - Taste disorder [Unknown]
  - Dizziness [Unknown]
  - Fatigue [Unknown]
  - Dehydration [Unknown]
  - Hair colour changes [Unknown]
  - Night sweats [Unknown]
  - Muscle disorder [Unknown]
  - Feeling abnormal [Unknown]
  - Product dose omission issue [Unknown]
